FAERS Safety Report 5017839-4 (Version None)
Quarter: 2006Q2

REPORT INFORMATION
  Report Type: 
  Country: None (occurrence: None)
  Receive Date: 20060605
  Receipt Date: 20060522
  Transmission Date: 20061013
  Serious: Yes (Other)
  Sender: FDA-Public Use
  Company Number: PHEH2006US06703

PATIENT
  Age: 73 Year
  Sex: Male

DRUGS (3)
  1. COUMADIN [Concomitant]
  2. LIPITOR [Concomitant]
  3. ZOMETA [Suspect]
     Indication: PROSTATE CANCER
     Dates: start: 20060201

REACTIONS (1)
  - GASTROINTESTINAL HAEMORRHAGE [None]
